FAERS Safety Report 6510271-3 (Version None)
Quarter: 2009Q4

REPORT INFORMATION
  Report Type: 
  Country: None (occurrence: None)
  Receive Date: 20091221
  Receipt Date: 20091221
  Transmission Date: 20100525
  Serious: Yes (Hospitalization, Other)
  Sender: FDA-Public Use
  Company Number: None

PATIENT
  Age: 55 Year
  Sex: Female
  Weight: 86.1834 kg

DRUGS (2)
  1. ALPRAZOLAM [Suspect]
     Indication: ANXIETY
     Dosage: 1 TAB 4X DAILY PO
     Route: 048
     Dates: start: 20091208, end: 20091212
  2. ALPRAZOLAM [Suspect]
     Indication: PANIC ATTACK
     Dosage: 1 TAB 4X DAILY PO
     Route: 048
     Dates: start: 20091208, end: 20091212

REACTIONS (14)
  - ABASIA [None]
  - ANXIETY [None]
  - BLOOD GLUCOSE INCREASED [None]
  - COLD SWEAT [None]
  - CRYING [None]
  - DRUG HYPERSENSITIVITY [None]
  - DYSKINESIA [None]
  - DYSPHEMIA [None]
  - HEART RATE INCREASED [None]
  - MOVEMENT DISORDER [None]
  - PALLOR [None]
  - PANIC ATTACK [None]
  - PRODUCT SUBSTITUTION ISSUE [None]
  - REACTION TO DRUG EXCIPIENTS [None]
